FAERS Safety Report 6711528-3 (Version None)
Quarter: 2010Q2

REPORT INFORMATION
  Report Type: 
  Country: None (occurrence: None)
  Receive Date: 20100505
  Receipt Date: 20100422
  Transmission Date: 20101027
  Serious: Yes (Hospitalization, Other)
  Sender: FDA-Public Use
  Company Number: PHHY2009GB50755

PATIENT
  Sex: Female

DRUGS (8)
  1. CLOZARIL [Suspect]
     Indication: SCHIZOPHRENIA
     Dosage: 350 MG, UNK
     Route: 048
     Dates: start: 20090907, end: 20091116
  2. OLANZAPINE [Concomitant]
  3. LITHIUM CARBONATE [Concomitant]
     Dosage: 400 UG
     Dates: start: 20091009, end: 20091116
  4. PHENYTOIN [Concomitant]
     Indication: CONVULSION
     Dosage: 275 MG
     Route: 048
  5. FERROUS SULFATE TAB [Concomitant]
     Indication: ANAEMIA
     Dosage: 200 MG
     Route: 048
  6. CLONAZEPAM [Concomitant]
     Dosage: 2 MG
  7. ERGOCALCIFEROL [Concomitant]
     Dosage: UNK
     Route: 048
  8. BENDROFLUAZIDE [Concomitant]
     Dosage: 2.5 MG

REACTIONS (5)
  - H1N1 INFLUENZA [None]
  - NEUTROPENIA [None]
  - NEUTROPHIL COUNT DECREASED [None]
  - PYREXIA [None]
  - WHITE BLOOD CELL COUNT DECREASED [None]
